FAERS Safety Report 16084274 (Version 1)
Quarter: 2019Q1

REPORT INFORMATION
  Report Type: Report from Study
  Country: ES (occurrence: ES)
  Receive Date: 20190318
  Receipt Date: 20190318
  Transmission Date: 20190418
  Serious: Yes (Hospitalization)
  Sender: FDA-Public Use
  Company Number: ES-PFIZER INC-2019108289

PATIENT
  Age: 4 Year
  Sex: Female

DRUGS (11)
  1. CYTARABINE. [Suspect]
     Active Substance: CYTARABINE
     Indication: ACUTE LYMPHOCYTIC LEUKAEMIA
     Dosage: 49.4 MG, 1X/DAY
     Route: 042
     Dates: start: 20180124, end: 20180127
  2. VINCRISTINE SULFATE. [Suspect]
     Active Substance: VINCRISTINE SULFATE
     Indication: ACUTE LYMPHOCYTIC LEUKAEMIA
     Dosage: 0.99 MG, WEEKLY
     Route: 042
     Dates: start: 20180108, end: 20180115
  3. TIOGUANINE [Suspect]
     Active Substance: THIOGUANINE ANHYDROUS
     Indication: ACUTE LYMPHOCYTIC LEUKAEMIA
     Dosage: 40 MG, 1X/DAY
     Route: 048
     Dates: start: 20180122, end: 20180201
  4. ZOVIRAX [Concomitant]
     Active Substance: ACYCLOVIR
     Indication: OPPORTUNISTIC INFECTION PROPHYLAXIS
     Dosage: 400 MG/ 5 ML, 2 ML, 3X/DAY (EVERY 8 HOURS)
     Route: 048
     Dates: start: 20170627
  5. CYCLOPHOSPHAMIDE. [Suspect]
     Active Substance: CYCLOPHOSPHAMIDE
     Indication: ACUTE LYMPHOCYTIC LEUKAEMIA
     Dosage: 329.1 MG, 1X/DAY
     Route: 042
     Dates: start: 20180122, end: 20180122
  6. OMEPRAZOL [Concomitant]
     Active Substance: OMEPRAZOLE
     Indication: PROPHYLAXIS AGAINST GASTROINTESTINAL ULCER
     Dosage: 20 MG, 1X/DAY
     Route: 048
     Dates: start: 20180108, end: 20180129
  7. DEXAMETHASONE. [Suspect]
     Active Substance: DEXAMETHASONE
     Indication: ACUTE LYMPHOCYTIC LEUKAEMIA
     Dosage: 4 MG, 2X/DAY (EVERY 12 HOURS)
     Route: 048
     Dates: start: 20180108, end: 20180129
  8. DOXORUBICIN HCL [Suspect]
     Active Substance: DOXORUBICIN HYDROCHLORIDE
     Indication: ACUTE LYMPHOCYTIC LEUKAEMIA
     Dosage: 19.7 MG, WEEKLY
     Route: 042
     Dates: start: 20180108, end: 20180115
  9. ONCASPAR [Suspect]
     Active Substance: PEGASPARGASE
     Indication: ACUTE LYMPHOCYTIC LEUKAEMIA
     Dosage: 658.3 IU, 1X/DAY
     Route: 030
     Dates: start: 20180122, end: 20180122
  10. MESNA. [Concomitant]
     Active Substance: MESNA
     Indication: PROPHYLAXIS
     Dosage: 395.1 MG, 1X/DAY
     Route: 042
     Dates: start: 20180122, end: 20180122
  11. SEPTRIN PAEDIATRIC [Concomitant]
     Active Substance: SULFAMETHOXAZOLE\TRIMETHOPRIM
     Indication: OPPORTUNISTIC INFECTION PROPHYLAXIS
     Dosage: SULFAMETHOXAZOLE/ TRIMETHOPRIM=8 MG/ 40 MG/ML, 5 ML, 2X/DAY (EVERY 12 HOURS)
     Route: 048
     Dates: start: 20170627

REACTIONS (2)
  - Pancytopenia [Recovered/Resolved]
  - Corona virus infection [Recovered/Resolved]

NARRATIVE: CASE EVENT DATE: 20180127
